FAERS Safety Report 10026377 (Version 2)
Quarter: 2014Q1

REPORT INFORMATION
  Report Type: Spontaneous
  Country: US (occurrence: US)
  Receive Date: 20140321
  Receipt Date: 20140321
  Transmission Date: 20141002
  Serious: No
  Sender: FDA-Public Use
  Company Number: US-ALLERGAN-1303827US

PATIENT
  Age: 61 Year
  Sex: Female

DRUGS (6)
  1. REFRESH OPTIVE [Suspect]
     Indication: DRY EYE
     Dosage: UNK UNK, PRN
     Route: 047
  2. LUMIGAN [Suspect]
     Indication: GLAUCOMA
     Dosage: 2 GTT, QHS
     Route: 047
  3. LUMIGAN [Suspect]
     Dosage: 1 GTT, QHS
     Route: 047
     Dates: start: 201302
  4. VITAMINS [Concomitant]
     Indication: NUTRITIONAL SUPPLEMENTATION
     Dosage: UNK
     Route: 048
  5. ASPIRIN [Concomitant]
     Indication: MITRAL VALVE PROLAPSE
     Dosage: 81 MG, UNK
     Route: 048
  6. TOPICAL CREAM NOS [Concomitant]
     Indication: ECZEMA
     Dosage: UNK, PRN
     Route: 061

REACTIONS (2)
  - Asthenopia [Recovered/Resolved]
  - Therapeutic response decreased [Unknown]
